FAERS Safety Report 4603352-2 (Version None)
Quarter: 2005Q1

REPORT INFORMATION
  Report Type: 
  Country: None (occurrence: None)
  Receive Date: 20050308
  Receipt Date: 20050223
  Transmission Date: 20050727
  Serious: Yes (Other)
  Sender: FDA-Public Use
  Company Number: 2005026113

PATIENT
  Sex: Male

DRUGS (5)
  1. BEXTRA [Suspect]
     Indication: POST PROCEDURAL PAIN
     Dosage: 40 MG (40 MG, SINGLE INTERVAL:  EVERY DAY), ORAL
     Route: 048
     Dates: start: 20050124, end: 20050101
  2. DICLOFENAC SODIUM [Concomitant]
  3. DOXYCYCLINE [Concomitant]
  4. RABEPRAZOLE SODIUM [Concomitant]
  5. PANTOPRAZOLE (PANTOPRAZOLE) [Concomitant]

REACTIONS (7)
  - CONDITION AGGRAVATED [None]
  - DUODENITIS [None]
  - DYSPEPSIA [None]
  - DYSPHAGIA [None]
  - GASTRITIS [None]
  - OESOPHAGEAL ULCER [None]
  - PAIN [None]
